FAERS Safety Report 16431180 (Version 1)
Quarter: 2019Q2

REPORT INFORMATION
  Report Type: Spontaneous
  Country: US (occurrence: US)
  Receive Date: 20190614
  Receipt Date: 20190614
  Transmission Date: 20190711
  Serious: No
  Sender: FDA-Public Use
  Company Number: US-PFIZER INC-2019252018

PATIENT
  Age: 39 Year
  Sex: Male
  Weight: 117.93 kg

DRUGS (3)
  1. LYRICA [Suspect]
     Active Substance: PREGABALIN
     Indication: NEURALGIA
     Dosage: UNK UNK, TWICE A DAY
     Route: 048
     Dates: start: 2017
  2. BUPROPION [BUPROPION HYDROCHLORIDE] [Concomitant]
  3. LYRICA [Suspect]
     Active Substance: PREGABALIN
     Dosage: 75 MG, ONCE A DAY (AT NIGHT)
     Route: 048

REACTIONS (1)
  - Visual impairment [Recovered/Resolved]
